FAERS Safety Report 4825367-1 (Version None)
Quarter: 2005Q4

REPORT INFORMATION
  Report Type: 
  Country: None (occurrence: None)
  Receive Date: 20051111
  Receipt Date: 20051031
  Transmission Date: 20060501
  Serious: Yes (Other)
  Sender: FDA-Public Use
  Company Number: EC-ROCHE-423194

PATIENT
  Age: 30 Year
  Sex: Female
  Weight: 54.5 kg

DRUGS (1)
  1. PEGASYS [Suspect]
     Indication: HEPATITIS C
     Route: 058
     Dates: start: 20050720

REACTIONS (1)
  - CONVULSION [None]
